FAERS Safety Report 18023905 (Version 1)
Quarter: 2020Q3

REPORT INFORMATION
  Report Type: Spontaneous
  Country: US (occurrence: US)
  Receive Date: 20200714
  Receipt Date: 20200714
  Transmission Date: 20201103
  Serious: Yes (Hospitalization)
  Sender: FDA-Public Use
  Company Number: None

PATIENT
  Sex: Female

DRUGS (16)
  1. RISEDRONATE [Concomitant]
     Active Substance: RISEDRONATE SODIUM
  2. ZYRTEC ALLGY [Concomitant]
  3. ESCITALOPRAM [Concomitant]
     Active Substance: ESCITALOPRAM OXALATE
  4. RISPERIDONE. [Concomitant]
     Active Substance: RISPERIDONE
  5. VIMPAT [Concomitant]
     Active Substance: LACOSAMIDE
  6. VITAMIN D [Concomitant]
     Active Substance: VITAMIN D NOS
  7. DOC?Q?LAX [Concomitant]
  8. VITAMIN D3 [Concomitant]
     Active Substance: CHOLECALCIFEROL
  9. TYLENOL/COD [Concomitant]
  10. TACROLIMUS, 1 MG CAP (50) [Suspect]
     Active Substance: TACROLIMUS
     Indication: RENAL TRANSPLANT
     Dosage: ?          OTHER DOSE:3 CAPS ? 2 CAPS;OTHER FREQUENCY:QAM?APM;?
     Route: 048
     Dates: start: 20180803
  11. PREDNISONE. [Concomitant]
     Active Substance: PREDNISONE
  12. TACROLIMUS, 1 MG CAP (100) [Suspect]
     Active Substance: TACROLIMUS
     Indication: RENAL TRANSPLANT
     Dosage: ?          OTHER DOSE:3 CAPS ? 2 CAPS;OTHER FREQUENCY:QAM ? QPM;?
     Route: 048
     Dates: start: 20180803
  13. ASPIRIN. [Concomitant]
     Active Substance: ASPIRIN
  14. METHIMAZOLE. [Concomitant]
     Active Substance: METHIMAZOLE
  15. CLONIDINE. [Concomitant]
     Active Substance: CLONIDINE
  16. DAPSONE. [Concomitant]
     Active Substance: DAPSONE

REACTIONS (1)
  - Headache [None]
